FAERS Safety Report 9354787 (Version 1)
Quarter: 2013Q2

REPORT INFORMATION
  Report Type: Report from Study
  Country: GB (occurrence: GB)
  Receive Date: 20130619
  Receipt Date: 20130619
  Transmission Date: 20140414
  Serious: Yes (Death, Other)
  Sender: FDA-Public Use
  Company Number: GB-ROCHE-GNE288042

PATIENT
  Age: 64 Year
  Sex: Male

DRUGS (1)
  1. ALTEPLASE [Suspect]
     Indication: ISCHAEMIC STROKE
     Dosage: UNK UNK, UNK
     Route: 042

REACTIONS (3)
  - Ischaemic stroke [Fatal]
  - Coma [Unknown]
  - Quadriparesis [Unknown]
